FAERS Safety Report 25162738 (Version 1)
Quarter: 2025Q2

REPORT INFORMATION
  Report Type: Spontaneous
  Country: US (occurrence: US)
  Receive Date: 20250404
  Receipt Date: 20250404
  Transmission Date: 20250716
  Serious: No
  Sender: SANOFI AVENTIS
  Company Number: US-SA-2025SA096813

PATIENT
  Age: 61 Year
  Sex: Female

DRUGS (14)
  1. DUPIXENT [Suspect]
     Active Substance: DUPILUMAB
     Dosage: 200 MG/1.14ML: INJECT 1 PEN (200 MG) UNDER THE SKIN (SUBCUTANEOUS INJECTION) EVERY 14 DAYS STARTING
     Route: 058
     Dates: start: 20241008
  2. BOTOX [Concomitant]
     Active Substance: ONABOTULINUMTOXINA
  3. DEXAMETHASONE PHOSPHATE [Concomitant]
     Active Substance: DEXAMETHASONE PHOSPHATE
  4. DIAZEPAM [Concomitant]
     Active Substance: DIAZEPAM
  5. ESTROGEL [Concomitant]
     Active Substance: ESTRADIOL
  6. METHYLPREDNISOLONE ACETATE [Concomitant]
     Active Substance: METHYLPREDNISOLONE ACETATE
  7. METHYLPREDNISOLONE [Concomitant]
     Active Substance: METHYLPREDNISOLONE
  8. MONTELUKAST [Concomitant]
     Active Substance: MONTELUKAST
  9. ACETAMINOPHEN\OXYCODONE HYDROCHLORIDE [Concomitant]
     Active Substance: ACETAMINOPHEN\OXYCODONE HYDROCHLORIDE
  10. PROGESTERONE [Concomitant]
     Active Substance: PROGESTERONE
  11. TOPIRAMATE [Concomitant]
     Active Substance: TOPIRAMATE
  12. TRAZODONE [Concomitant]
     Active Substance: TRAZODONE HYDROCHLORIDE
  13. TRINTELLIX [Concomitant]
     Active Substance: VORTIOXETINE HYDROBROMIDE
  14. ZYLET [Concomitant]
     Active Substance: LOTEPREDNOL ETABONATE\TOBRAMYCIN

REACTIONS (1)
  - Impaired quality of life [Unknown]
